FAERS Safety Report 25009655 (Version 2)
Quarter: 2025Q2

REPORT INFORMATION
  Report Type: Spontaneous
  Country: DE (occurrence: DE)
  Receive Date: 20250225
  Receipt Date: 20250515
  Transmission Date: 20250717
  Serious: Yes (Other)
  Sender: ROCHE
  Company Number: DE-002147023-NVSC2025DE030390

PATIENT
  Age: 80 Year
  Sex: Female

DRUGS (1)
  1. LUCENTIS [Suspect]
     Active Substance: RANIBIZUMAB
     Indication: Age-related macular degeneration
     Route: 050
     Dates: start: 202310

REACTIONS (3)
  - Intra-ocular injection complication [Not Recovered/Not Resolved]
  - Vision blurred [Not Recovered/Not Resolved]
  - Product dispensing error [Unknown]

NARRATIVE: CASE EVENT DATE: 20250130
